FAERS Safety Report 14689601 (Version 1)
Quarter: 2018Q1

REPORT INFORMATION
  Report Type: Spontaneous
  Country: FR (occurrence: FR)
  Receive Date: 20180328
  Receipt Date: 20180328
  Transmission Date: 20180509
  Serious: Yes (Hospitalization)
  Sender: FDA-Public Use
  Company Number: FR-PFIZER INC-2018123767

PATIENT
  Age: 33 Year
  Sex: Female
  Weight: 65 kg

DRUGS (5)
  1. POLARAMINE [Concomitant]
     Active Substance: DEXCHLORPHENIRAMINE MALEATE
     Indication: PRURITUS
     Dosage: UNK
     Dates: start: 20160809
  2. PARACETAMOL [Suspect]
     Active Substance: ACETAMINOPHEN
     Dosage: UNK
     Route: 048
  3. BACTRIM [Suspect]
     Active Substance: SULFAMETHOXAZOLE\TRIMETHOPRIM
     Indication: TONSILLITIS
     Dosage: UNK
     Route: 048
     Dates: start: 20160802, end: 20160809
  4. IBUPROFEN. [Suspect]
     Active Substance: IBUPROFEN
     Dosage: UNK
     Route: 048
  5. SOLUPRED /00016217/ [Suspect]
     Active Substance: PREDNISOLONE
     Indication: PRURITUS
     Dosage: UNK
     Route: 048
     Dates: start: 20160809

REACTIONS (1)
  - Rash maculo-papular [Recovering/Resolving]

NARRATIVE: CASE EVENT DATE: 20160809
